FAERS Safety Report 14949315 (Version 1)
Quarter: 2018Q2

REPORT INFORMATION
  Report Type: Spontaneous
  Country: US (occurrence: US)
  Receive Date: 20180508
  Receipt Date: 20180508
  Transmission Date: 20180711
  Serious: Yes (Other)
  Sender: FDA-Public Use
  Company Number: None

PATIENT
  Age: 40 Year
  Sex: Female
  Weight: 91.71 kg

DRUGS (12)
  1. TIVICAY [Suspect]
     Active Substance: DOLUTEGRAVIR SODIUM
     Indication: HIV INFECTION
     Route: 048
  2. CITALOPRAM [Concomitant]
     Active Substance: CITALOPRAM HYDROBROMIDE
     Dates: start: 20160802
  3. PROPRANOLOL 10 MG [Concomitant]
     Dates: start: 20160720
  4. TIZANIDINE 4 MG [Concomitant]
     Active Substance: TIZANIDINE
     Dates: start: 20160314
  5. ERGOCALCIFEROL 50,000U [Concomitant]
     Dates: start: 20140710
  6. CETIRIZINE [Concomitant]
     Active Substance: CETIRIZINE HYDROCHLORIDE
     Dates: start: 20160721
  7. HYDROXYZINE HCL 25 MG [Concomitant]
     Active Substance: HYDROXYZINE HYDROCHLORIDE
     Dates: start: 20170720
  8. LOSARTAN 100 MG [Concomitant]
     Active Substance: LOSARTAN
     Dates: start: 20131027
  9. ABACAVIR 200 MG [Concomitant]
     Dates: start: 20171020, end: 20171120
  10. PANTOPRAZOLE 40 MG [Concomitant]
     Active Substance: PANTOPRAZOLE SODIUM
     Dates: start: 20130523
  11. DESCOVY 200-25 MG [Concomitant]
     Dates: start: 20170314
  12. GABAPENTIN 400 MG [Concomitant]
     Active Substance: GABAPENTIN
     Dates: start: 20160520

REACTIONS (1)
  - Leukopenia [None]

NARRATIVE: CASE EVENT DATE: 20180504
